FAERS Safety Report 6217903-8 (Version None)
Quarter: 2009Q2

REPORT INFORMATION
  Report Type: 
  Country: None (occurrence: None)
  Receive Date: 20090608
  Receipt Date: 20090525
  Transmission Date: 20091009
  Serious: Yes (Disabling)
  Sender: FDA-Public Use
  Company Number: SE-ELI_LILLY_AND_COMPANY-SE200906000444

PATIENT
  Age: 61 Year
  Sex: Male

DRUGS (2)
  1. GEMZAR [Suspect]
     Indication: BLADDER CANCER
     Dosage: 2000 MG, WEEKLY (1/W)
     Route: 042
     Dates: start: 20071120, end: 20080717
  2. CISPLATIN [Concomitant]
     Indication: BLADDER CANCER
     Dosage: 140 MG, WEEKLY (1/W)
     Route: 042
     Dates: start: 20071120, end: 20080717

REACTIONS (2)
  - NEUROPATHY PERIPHERAL [None]
  - PARAESTHESIA [None]
